FAERS Safety Report 5939482-2 (Version None)
Quarter: 2008Q4

REPORT INFORMATION
  Report Type: 
  Country: None (occurrence: None)
  Receive Date: 20081103
  Receipt Date: 20081029
  Transmission Date: 20090506
  Serious: Yes (Other)
  Sender: FDA-Public Use
  Company Number: US-ALLERGAN-0813827US

PATIENT

DRUGS (1)
  1. BOTOX COSMETIC [Suspect]
     Indication: SKIN WRINKLING
     Dosage: REPEATED TREATMENT OVER YEARS
     Route: 030

REACTIONS (1)
  - FACIAL WASTING [None]
